FAERS Safety Report 14929308 (Version 3)
Quarter: 2018Q3

REPORT INFORMATION
  Report Type: Spontaneous
  Country: DE (occurrence: DE)
  Receive Date: 20180523
  Receipt Date: 20180816
  Transmission Date: 20181010
  Serious: Yes (Hospitalization)
  Sender: FDA-Public Use
  Company Number: DE-UCBSA-2018022844

PATIENT
  Age: 55 Year
  Sex: Male
  Weight: 104 kg

DRUGS (1)
  1. CIMZIA [Suspect]
     Active Substance: CERTOLIZUMAB PEGOL
     Indication: PSORIATIC ARTHROPATHY
     Dosage: 400 MG, EV 2 WEEKS(QOW)
     Route: 058
     Dates: start: 20180426, end: 20180504

REACTIONS (3)
  - Left ventricular end-diastolic pressure increased [Unknown]
  - Pleurisy [Recovering/Resolving]
  - Pneumonia viral [Unknown]

NARRATIVE: CASE EVENT DATE: 20180504
